FAERS Safety Report 11686108 (Version 3)
Quarter: 2025Q4

REPORT INFORMATION
  Report Type: Spontaneous
  Country: EU (occurrence: EU)
  Receive Date: 20151030
  Receipt Date: 20251204
  Transmission Date: 20260118
  Serious: Yes (Other)
  Sender: NOVARTIS
  Company Number: PHHY2015ES135045

PATIENT
  Age: 16 Year
  Sex: Male

DRUGS (8)
  1. ELTROMBOPAG OLAMINE [Interacting]
     Active Substance: ELTROMBOPAG OLAMINE
     Indication: Thrombocytopenia
     Dosage: 50 MG, QD
     Route: 065
     Dates: start: 20150312
  2. ELTROMBOPAG OLAMINE [Interacting]
     Active Substance: ELTROMBOPAG OLAMINE
     Dosage: 150 MG, QD
     Route: 065
  3. CYCLOSPORINE [Interacting]
     Active Substance: CYCLOSPORINE
     Indication: Bone marrow failure
     Dosage: 30 MG, Q12H
     Route: 065
  4. CYCLOSPORINE [Interacting]
     Active Substance: CYCLOSPORINE
     Dosage: 2.9 MG/KG, QD
     Route: 065
  5. CYCLOSPORINE [Interacting]
     Active Substance: CYCLOSPORINE
     Dosage: 2.5 MG/KG, QD
     Route: 065
  6. CYCLOSPORINE [Interacting]
     Active Substance: CYCLOSPORINE
     Dosage: 1 MG/KG, QD
     Route: 065
  7. CYCLOSPORINE [Interacting]
     Active Substance: CYCLOSPORINE
     Dosage: 2.8 MG/KG, QD
     Route: 065
  8. VORICONAZOLE [Concomitant]
     Active Substance: VORICONAZOLE
     Indication: Product used for unknown indication
     Route: 065

REACTIONS (3)
  - Renal failure [Recovered/Resolved]
  - Drug interaction [Unknown]
  - Platelet count increased [Unknown]
